FAERS Safety Report 22773737 (Version 2)
Quarter: 2023Q4

REPORT INFORMATION
  Report Type: Report from Study
  Country: US (occurrence: US)
  Receive Date: 20230801
  Receipt Date: 20231214
  Transmission Date: 20240110
  Serious: Yes (Hospitalization, Other)
  Sender: FDA-Public Use
  Company Number: US-ABBVIE-5348206

PATIENT
  Sex: Female
  Weight: 112 kg

DRUGS (11)
  1. CREON [Suspect]
     Active Substance: PANCRELIPASE AMYLASE\PANCRELIPASE LIPASE\PANCRELIPASE PROTEASE
     Indication: Product used for unknown indication
     Dosage: FORM STRENGTH: 36000 UNIT?114000-180000 UNIT TOOK TWO CAPSULES WITH EACH MEAL AND ONE CAP WITH EA...
     Route: 048
     Dates: start: 20220805
  2. DEXILANT [Concomitant]
     Active Substance: DEXLANSOPRAZOLE
     Indication: Product used for unknown indication
     Dosage: BIPHASE DELAYED RELEASE?1 CAPSULE ONCE A DAY
     Route: 048
     Dates: start: 20230805
  3. FAMOTIDINE [Concomitant]
     Active Substance: FAMOTIDINE
     Indication: Product used for unknown indication
     Dosage: EVERY BEDTIME
     Route: 048
     Dates: start: 20230302
  4. GABAPENTIN [Concomitant]
     Active Substance: GABAPENTIN
     Indication: Product used for unknown indication
     Dosage: 1 TABLET ONCE A DAY
     Route: 048
     Dates: start: 20220805
  5. GLYCOPYRROLATE [Concomitant]
     Active Substance: GLYCOPYRROLATE
     Indication: Product used for unknown indication
     Dosage: 1 TABLET TWICE A DAY
     Route: 048
     Dates: end: 20220805
  6. HUMALOG MIX50/50 [Concomitant]
     Active Substance: INSULIN LISPRO
     Indication: Product used for unknown indication
     Dosage: HUMALOG MIX 50-50 INSULIN U-100?100 UNIT/ML?ADMINISTER 10 UNIT ONCE A DAY
     Route: 050
     Dates: start: 20220805
  7. HYDROXYZINE HYDROCHLORIDE [Concomitant]
     Active Substance: HYDROXYZINE HYDROCHLORIDE
     Indication: Product used for unknown indication
     Dosage: AS NEEDED
     Route: 048
     Dates: start: 20230805
  8. LISINOPRIL [Concomitant]
     Active Substance: LISINOPRIL
     Indication: Product used for unknown indication
     Route: 048
     Dates: start: 20220805
  9. METOPROLOL TARTRATE [Concomitant]
     Active Substance: METOPROLOL TARTRATE
     Indication: Product used for unknown indication
     Route: 048
     Dates: start: 20220805
  10. NOVOLIN N [Concomitant]
     Active Substance: INSULIN HUMAN
     Indication: Product used for unknown indication
     Dosage: 100UNIT/ML?30 UNIT ONCE A DAY
     Route: 058
  11. SUCRALFATE [Concomitant]
     Active Substance: SUCRALFATE
     Indication: Product used for unknown indication
     Dosage: BEFORE EVERY MEAL  AND TAKE AT BEDTIME
     Route: 048
     Dates: start: 20230805

REACTIONS (1)
  - Knee arthroplasty [Recovering/Resolving]
